FAERS Safety Report 16037099 (Version 1)
Quarter: 2019Q1

REPORT INFORMATION
  Report Type: Spontaneous
  Country: US (occurrence: US)
  Receive Date: 20190305
  Receipt Date: 20190305
  Transmission Date: 20190418
  Serious: No
  Sender: FDA-Public Use
  Company Number: US-IMPAX LABORATORIES, LLC-2018-IPXL-03187

PATIENT
  Age: 67 Year
  Sex: Male
  Weight: 136 kg

DRUGS (10)
  1. FLORINEF ACETATE [Concomitant]
     Active Substance: FLUDROCORTISONE ACETATE
     Indication: PRODUCT USED FOR UNKNOWN INDICATION
     Dosage: UNK
     Route: 048
  2. RIVASTIGMINE. [Suspect]
     Active Substance: RIVASTIGMINE
     Indication: MEMORY IMPAIRMENT
     Dosage: UNK
     Route: 048
  3. RYTARY [Suspect]
     Active Substance: CARBIDOPA\LEVODOPA
     Indication: PARKINSON^S DISEASE
     Dosage: 48.75/195 MG, TWO CAPSULES, FIVE TIMES DAILY
     Route: 048
     Dates: start: 20180914
  4. RIVASTIGMINE. [Suspect]
     Active Substance: RIVASTIGMINE
     Dosage: UNK, DOSE INCREASED
     Route: 048
     Dates: start: 20180914, end: 201809
  5. ZOLOFT [Concomitant]
     Active Substance: SERTRALINE HYDROCHLORIDE
     Indication: PRODUCT USED FOR UNKNOWN INDICATION
     Dosage: UNK
     Route: 048
  6. SIMVASTATIN. [Concomitant]
     Active Substance: SIMVASTATIN
     Indication: PRODUCT USED FOR UNKNOWN INDICATION
     Dosage: UNK
     Route: 048
  7. CLONAZEPAM. [Concomitant]
     Active Substance: CLONAZEPAM
     Indication: INSOMNIA
     Dosage: UNK
     Route: 048
  8. RIVASTIGMINE. [Suspect]
     Active Substance: RIVASTIGMINE
     Dosage: UNK, DOSE DECREASED (BACK TO HIS NORMAL DOSE)
     Route: 048
     Dates: start: 201809
  9. MIDODRINE [Concomitant]
     Active Substance: MIDODRINE
     Indication: PRODUCT USED FOR UNKNOWN INDICATION
     Dosage: UNK
     Route: 048
  10. RANITIDINE. [Concomitant]
     Active Substance: RANITIDINE
     Indication: GASTROOESOPHAGEAL REFLUX DISEASE
     Dosage: UNK
     Route: 048

REACTIONS (6)
  - Fall [Recovered/Resolved]
  - Abdominal discomfort [Recovered/Resolved]
  - Dizziness [Unknown]
  - Malaise [Unknown]
  - Therapeutic response shortened [Not Recovered/Not Resolved]
  - Vomiting [Recovered/Resolved]

NARRATIVE: CASE EVENT DATE: 201809
